FAERS Safety Report 7618552-7 (Version None)
Quarter: 2011Q3

REPORT INFORMATION
  Report Type: 
  Country: None (occurrence: None)
  Receive Date: 20110718
  Receipt Date: 20110711
  Transmission Date: 20111222
  Serious: Yes (Other)
  Sender: FDA-Public Use
  Company Number: CHPA2011US09147

PATIENT
  Sex: Male

DRUGS (3)
  1. ANTIHYPERTENSIVES [Concomitant]
     Indication: HYPERTENSION
  2. MAALOX ADV MAXIMUM STRENGTH ANTACID/ANTIGAS [Suspect]
     Indication: DYSPEPSIA
  3. MAALOX ADV MAXIMUM STRENGTH ANTACID/ANTIGAS [Suspect]
     Indication: ABDOMINAL DISTENSION
     Dosage: 1 TSP, ONCE/SINGLE
     Route: 048
     Dates: start: 20110709, end: 20110709

REACTIONS (5)
  - DISORIENTATION [None]
  - SOMNOLENCE [None]
  - DIZZINESS [None]
  - UNDERDOSE [None]
  - LOSS OF CONSCIOUSNESS [None]
